FAERS Safety Report 15951691 (Version 2)
Quarter: 2019Q1

REPORT INFORMATION
  Report Type: Report from Study
  Country: CN (occurrence: CN)
  Receive Date: 20190212
  Receipt Date: 20190225
  Transmission Date: 20190417
  Serious: Yes (Hospitalization)
  Sender: FDA-Public Use
  Company Number: CN-BAYER-2019-026461

PATIENT
  Sex: Male
  Weight: 55 kg

DRUGS (13)
  1. RITUXIMAB. [Suspect]
     Active Substance: RITUXIMAB
     Indication: NON-HODGKIN^S LYMPHOMA RECURRENT
     Dosage: 375 MG, QD
     Route: 042
     Dates: start: 20181220, end: 20181220
  2. COPANLISIB. [Suspect]
     Active Substance: COPANLISIB
     Indication: NON-HODGKIN^S LYMPHOMA RECURRENT
     Dosage: 60 MG, QD, 3 WEEKS ON/1 WEEK OFF
     Route: 042
     Dates: start: 20190110, end: 20190110
  3. COPANLISIB. [Suspect]
     Active Substance: COPANLISIB
     Indication: NON-HODGKIN^S LYMPHOMA RECURRENT
     Dosage: 60 MG, QD, 3 WEEKS ON/1 WEEK OFF
     Route: 042
     Dates: start: 20181213, end: 20181213
  4. COPANLISIB. [Suspect]
     Active Substance: COPANLISIB
     Indication: NON-HODGKIN^S LYMPHOMA RECURRENT
     Dosage: 60 MG, QD, 3 WEEKS ON/1 WEEK OFF
     Route: 042
     Dates: start: 20190117, end: 20190117
  5. COPANLISIB. [Suspect]
     Active Substance: COPANLISIB
     Indication: NON-HODGKIN^S LYMPHOMA RECURRENT
     Dosage: 60 MG, QD, 3 WEEKS ON/1 WEEK OFF
     Route: 042
     Dates: start: 20181206, end: 20181206
  6. COPANLISIB. [Suspect]
     Active Substance: COPANLISIB
     Indication: NON-HODGKIN^S LYMPHOMA RECURRENT
     Dosage: 60 MG, QD, 3 WEEKS ON/1 WEEK OFF
     Route: 042
     Dates: start: 20181220, end: 20181220
  7. COPANLISIB. [Suspect]
     Active Substance: COPANLISIB
     Indication: NON-HODGKIN^S LYMPHOMA RECURRENT
     Dosage: 60 MG, QD, 3 WEEKS ON/1 WEEK OFF
     Route: 042
     Dates: start: 20190103, end: 20190103
  8. RITUXIMAB. [Suspect]
     Active Substance: RITUXIMAB
     Indication: NON-HODGKIN^S LYMPHOMA RECURRENT
     Dosage: 375 MG, QD
     Route: 042
     Dates: start: 20181206, end: 20181206
  9. RITUXIMAB. [Suspect]
     Active Substance: RITUXIMAB
     Indication: NON-HODGKIN^S LYMPHOMA RECURRENT
     Dosage: 375 MG, QD
     Route: 042
     Dates: start: 20181227, end: 20181227
  10. CEFUROXIME AXETIL. [Concomitant]
     Active Substance: CEFUROXIME AXETIL
     Indication: LUNG INFECTION
     Dosage: 0.5 G, TOTAL DAILY DOSE
     Route: 048
     Dates: start: 20190130, end: 20190201
  11. AMBROXOL HYDROCHLORIDE [Concomitant]
     Active Substance: AMBROXOL HYDROCHLORIDE
     Indication: LUNG INFECTION
     Dosage: 90 MG, TOTAL DAILY DOSE
     Route: 048
     Dates: start: 20190201, end: 20190211
  12. CEFTIZOXIME SODIUM [Concomitant]
     Active Substance: CEFTIZOXIME SODIUM
     Indication: LUNG INFECTION
     Dosage: 2 G, TOLAL DAILY DOSE
     Route: 042
     Dates: start: 20190201, end: 20190211
  13. RITUXIMAB. [Suspect]
     Active Substance: RITUXIMAB
     Indication: NON-HODGKIN^S LYMPHOMA RECURRENT
     Dosage: 375 MG, QD
     Route: 042
     Dates: start: 20181213, end: 20181213

REACTIONS (1)
  - Bone marrow failure [Recovering/Resolving]

NARRATIVE: CASE EVENT DATE: 20190201
